FAERS Safety Report 17697642 (Version 1)
Quarter: 2020Q2

REPORT INFORMATION
  Report Type: Spontaneous
  Country: US (occurrence: US)
  Receive Date: 20200423
  Receipt Date: 20200423
  Transmission Date: 20200714
  Serious: No
  Sender: FDA-Public Use
  Company Number: US-MYLANLABS-2020M1038063

PATIENT
  Sex: Female
  Weight: 67 kg

DRUGS (2)
  1. SCOPOLAMINE TRANSDERMAL SYSTEM [Suspect]
     Active Substance: SCOPOLAMINE
     Indication: DIZZINESS
     Dosage: EVERY 3 DAYS
     Route: 062
  2. SCOPOLAMINE TRANSDERMAL SYSTEM [Suspect]
     Active Substance: SCOPOLAMINE
     Dosage: EVERY 3 DAYS
     Route: 062

REACTIONS (4)
  - Nausea [Not Recovered/Not Resolved]
  - Dizziness [Not Recovered/Not Resolved]
  - Product adhesion issue [Unknown]
  - Off label use [Unknown]
